FAERS Safety Report 9007619 (Version 2)
Quarter: 2013Q1

REPORT INFORMATION
  Report Type: Spontaneous
  Country: US (occurrence: US)
  Receive Date: 20130111
  Receipt Date: 20130219
  Transmission Date: 20140127
  Serious: No
  Sender: FDA-Public Use
  Company Number: US-BIOGENIDEC-2013BI000869

PATIENT
  Age: 18 None
  Sex: Female

DRUGS (1)
  1. TYSABRI [Suspect]
     Indication: MULTIPLE SCLEROSIS
     Route: 042
     Dates: start: 20121115

REACTIONS (9)
  - Polymenorrhoea [Not Recovered/Not Resolved]
  - Back disorder [Unknown]
  - Sensation of heaviness [Unknown]
  - Eye pain [Unknown]
  - Cough [Unknown]
  - Feeling abnormal [Unknown]
  - Nausea [Unknown]
  - Headache [Not Recovered/Not Resolved]
  - Fatigue [Not Recovered/Not Resolved]
